FAERS Safety Report 13987178 (Version 1)
Quarter: 2017Q3

REPORT INFORMATION
  Report Type: Spontaneous
  Country: US (occurrence: US)
  Receive Date: 20170919
  Receipt Date: 20170919
  Transmission Date: 20171128
  Serious: Yes (Other)
  Sender: FDA-Public Use
  Company Number: US-AMGEN-USASP2017140604

PATIENT
  Age: 63 Year
  Sex: Female

DRUGS (11)
  1. ALEVE [Concomitant]
     Active Substance: NAPROXEN SODIUM
     Dosage: 220 MG, UNK
  2. MELOXICAM. [Concomitant]
     Active Substance: MELOXICAM
     Dosage: 7.5 MG, UNK
  3. ENBREL [Suspect]
     Active Substance: ETANERCEPT
     Indication: RHEUMATOID ARTHRITIS
     Dosage: 50 MG, QWK
     Route: 058
     Dates: start: 2012
  4. FAMOTIDINE. [Concomitant]
     Active Substance: FAMOTIDINE
     Dosage: 20 MG, UNK
  5. METFORMIN HCL [Concomitant]
     Active Substance: METFORMIN HYDROCHLORIDE
     Dosage: 500 MG, UNK
  6. TRAMADOL HCL [Concomitant]
     Active Substance: TRAMADOL HYDROCHLORIDE
     Dosage: 50 MG, UNK
  7. ATORVASTATIN [Concomitant]
     Active Substance: ATORVASTATIN
     Dosage: 40 MG, UNK
  8. HYDROCODONE [Concomitant]
     Active Substance: HYDROCODONE
     Dosage: 10-325 MG
  9. GABAPENTIN. [Concomitant]
     Active Substance: GABAPENTIN
     Dosage: 300 MG, UNK
  10. AMOXICILLIN. [Concomitant]
     Active Substance: AMOXICILLIN
     Dosage: 500 MG, UNK
  11. FLUTICASONE. [Concomitant]
     Active Substance: FLUTICASONE
     Dosage: 50 MUG, UNK

REACTIONS (2)
  - Hip arthroplasty [Unknown]
  - Pain in extremity [Not Recovered/Not Resolved]
